FAERS Safety Report 20204234 (Version 2)
Quarter: 2022Q1

REPORT INFORMATION
  Report Type: Spontaneous
  Country: JP (occurrence: JP)
  Receive Date: 20211220
  Receipt Date: 20220108
  Transmission Date: 20220423
  Serious: Yes (Other)
  Sender: FDA-Public Use
  Company Number: JP-SA-2021SA416923

PATIENT
  Sex: Female

DRUGS (2)
  1. DUPIXENT [Suspect]
     Active Substance: DUPILUMAB
     Indication: Dermatitis atopic
     Dosage: UNK
     Route: 058
     Dates: start: 20211022
  2. CYCLOSPORINE [Suspect]
     Active Substance: CYCLOSPORINE
     Indication: Prurigo
     Dosage: UNK
     Route: 065

REACTIONS (4)
  - Retinal haemorrhage [Not Recovered/Not Resolved]
  - Visual field defect [Not Recovered/Not Resolved]
  - Alopecia [Unknown]
  - Dizziness [Unknown]

NARRATIVE: CASE EVENT DATE: 20211215
